FAERS Safety Report 7394534-8 (Version None)
Quarter: 2011Q2

REPORT INFORMATION
  Report Type: 
  Country: None (occurrence: None)
  Receive Date: 20110405
  Receipt Date: 20110330
  Transmission Date: 20111010
  Serious: Yes (Hospitalization)
  Sender: FDA-Public Use
  Company Number: PHHO2011DE04180

PATIENT
  Sex: Male

DRUGS (2)
  1. FTY 720 [Suspect]
     Indication: MULTIPLE SCLEROSIS
     Dosage: 0.5 MG / DAY
     Route: 048
     Dates: start: 20101207, end: 20110303
  2. CLARITHROMYCIN [Suspect]

REACTIONS (5)
  - INFLUENZA [None]
  - ASTHENIA [None]
  - DIARRHOEA [None]
  - SINUSITIS BACTERIAL [None]
  - VERTIGO [None]
